FAERS Safety Report 24943787 (Version 2)
Quarter: 2025Q1

REPORT INFORMATION
  Report Type: Report from Study
  Country: MX (occurrence: MX)
  Receive Date: 20250207
  Receipt Date: 20250221
  Transmission Date: 20250409
  Serious: Yes (Life-Threatening, Hospitalization)
  Sender: EISAI
  Company Number: MX-Eisai-EC-2025-183720

PATIENT
  Age: 63 Year
  Sex: Male
  Weight: 103 kg

DRUGS (9)
  1. LENVIMA [Suspect]
     Active Substance: LENVATINIB
     Indication: Clear cell renal cell carcinoma
     Dates: start: 20240819, end: 20241115
  2. METFORMIN [Concomitant]
     Active Substance: METFORMIN HYDROCHLORIDE
     Indication: Diabetes mellitus
  3. EMPAGLIFLOZIN [Concomitant]
     Active Substance: EMPAGLIFLOZIN
     Indication: Cardiac failure
  4. APIXABAN [Concomitant]
     Active Substance: APIXABAN
     Indication: Hypercoagulation
     Dates: start: 20230622
  5. SPIRONOLACTONE [Concomitant]
     Active Substance: SPIRONOLACTONE
     Dates: start: 20230622
  6. BISOPROLOL [Concomitant]
     Active Substance: BISOPROLOL
     Indication: Cardiac failure
     Dates: start: 20230622
  7. ATORVASTATIN [Concomitant]
     Active Substance: ATORVASTATIN
     Indication: Diabetes mellitus
     Dates: start: 20230622
  8. ENALAPRIL [Concomitant]
     Active Substance: ENALAPRIL
     Indication: Cardiac failure
     Dates: start: 20240130
  9. CABOZANTINIB [Concomitant]
     Active Substance: CABOZANTINIB
     Dates: start: 20240908

REACTIONS (1)
  - Hypovolaemic shock [Recovered/Resolved]

NARRATIVE: CASE EVENT DATE: 20241115
